FAERS Safety Report 11174019 (Version 1)
Quarter: 2015Q2

REPORT INFORMATION
  Report Type: Spontaneous
  Country: GB (occurrence: None)
  Receive Date: 20150605
  Receipt Date: 20150605
  Transmission Date: 20150821
  Serious: Yes (Other)
  Sender: FDA-Public Use
  Company Number: 2015-001160

PATIENT
  Age: 67 Year
  Sex: Female
  Weight: 83.9 kg

DRUGS (4)
  1. RISEDRONATE [Suspect]
     Active Substance: RISEDRONATE SODIUM
     Indication: OSTEOPOROSIS
     Dosage: 2 DOSES 2 MONTH APART
     Route: 048
     Dates: start: 20150220, end: 20150520
  2. FLUTICASONE [Concomitant]
     Active Substance: FLUTICASONE\FLUTICASONE PROPIONATE
  3. ANASTROZOLE. [Concomitant]
     Active Substance: ANASTROZOLE
  4. VITAMIN D (COLECALCIFEROL) [Concomitant]

REACTIONS (5)
  - Muscle spasms [None]
  - Syncope [None]
  - Pain [None]
  - Fall [None]
  - Gait disturbance [None]

NARRATIVE: CASE EVENT DATE: 201503
